FAERS Safety Report 8159748-8 (Version None)
Quarter: 2012Q1

REPORT INFORMATION
  Report Type: 
  Country: None (occurrence: None)
  Receive Date: 20120223
  Receipt Date: 20120216
  Transmission Date: 20120608
  Serious: Yes (Hospitalization)
  Sender: FDA-Public Use
  Company Number: GB-BRISTOL-MYERS SQUIBB COMPANY-16403412

PATIENT
  Age: 30 Year
  Sex: Female

DRUGS (6)
  1. LORAZEPAM [Concomitant]
     Dosage: 1MG 4/1DAYS,0.5MG 4/1DAYS,UNK-16NOV11,16NOV11-12DEC11,12DEC11-CONTINUE
     Route: 048
  2. OLANZAPINE [Concomitant]
     Dosage: 27OCT11-21NOV11,09JAN12-13JAN12
     Route: 048
     Dates: start: 20111027
  3. CLOZAPINE [Concomitant]
  4. ARIPIPRAZOLE [Suspect]
     Indication: SCHIZOPHRENIA
     Dosage: DOSSAGE:20MG,25MG,5MG,10MG,21-28NOV11,28NOV-5DEC11,5DEC-13DEC11,03JAN12-13JAN12,13JAN12-17JAN12
     Route: 048
     Dates: start: 20111121, end: 20120117
  5. AMISULPRIDE [Concomitant]
     Route: 048
  6. LITHIUM CARBONATE [Concomitant]

REACTIONS (1)
  - PSYCHOTIC DISORDER [None]
